FAERS Safety Report 7116937 (Version 4)
Quarter: 2013Q4

REPORT INFORMATION
  Report Type: Spontaneous
  Country: US (occurrence: US)
  Receive Date: 20090917
  Receipt Date: 20131030
  Transmission Date: 20140711
  Serious: Yes (Hospitalization)
  Sender: FDA-Public Use
  Company Number: US-BIOGENIDEC-2009BI029090

PATIENT
  Age: 59 Year
  Sex: Female

DRUGS (6)
  1. AVONEX [Suspect]
     Indication: MULTIPLE SCLEROSIS
     Route: 030
     Dates: start: 20000101
  2. AVONEX [Suspect]
     Indication: MULTIPLE SCLEROSIS
     Route: 030
     Dates: start: 20020730
  3. PLAQUINIL [Concomitant]
     Indication: SARCOIDOSIS
  4. CELEBREX [Concomitant]
     Indication: SARCOIDOSIS
  5. ALBUTEROL [Concomitant]
     Indication: SARCOIDOSIS
  6. FORADIL [Concomitant]
     Indication: SARCOIDOSIS

REACTIONS (11)
  - Arthritis [Recovered/Resolved]
  - Joint injury [Recovered/Resolved]
  - Visual impairment [Not Recovered/Not Resolved]
  - Gait disturbance [Not Recovered/Not Resolved]
  - Weight loss poor [Not Recovered/Not Resolved]
  - Weight increased [Not Recovered/Not Resolved]
  - Fibromyalgia [Not Recovered/Not Resolved]
  - Blood cholesterol increased [Unknown]
  - Hypertension [Unknown]
  - Cardiac disorder [Unknown]
  - Muscle spasms [Recovered/Resolved]
